FAERS Safety Report 6399358-6 (Version None)
Quarter: 2009Q4

REPORT INFORMATION
  Report Type: 
  Country: None (occurrence: None)
  Receive Date: 20091014
  Receipt Date: 20070712
  Transmission Date: 20100525
  Serious: Yes (Other)
  Sender: FDA-Public Use
  Company Number: US-ASTRAZENECA-2006UW24043

PATIENT
  Age: 14503 Day
  Sex: Male
  Weight: 132.4 kg

DRUGS (18)
  1. SEROQUEL [Suspect]
     Indication: BIPOLAR DISORDER
     Dosage: 50 MG TO 200 MG
     Route: 048
     Dates: start: 20000910
  2. SEROQUEL [Suspect]
     Indication: DEPRESSION
     Dosage: 50 MG TO 200 MG
     Route: 048
     Dates: start: 20000910
  3. ABILIFY [Concomitant]
  4. CLOZARIL [Concomitant]
  5. GEODON [Concomitant]
  6. HALDOL [Concomitant]
  7. DEPAKOTE [Concomitant]
     Dosage: 250 MG TO 1000 MG
     Route: 048
     Dates: start: 19990712
  8. ZOLOFT [Concomitant]
     Route: 048
     Dates: start: 19990712
  9. WELLBUTRIN SR [Concomitant]
     Route: 048
     Dates: start: 19990712
  10. EFFEXOR XR [Concomitant]
     Route: 048
     Dates: start: 20000910
  11. ACTOS [Concomitant]
     Dates: start: 20010905
  12. REMERON [Concomitant]
     Dates: start: 20000910
  13. ADDERALL 10 [Concomitant]
     Dosage: 20 MG TO 30 MG
     Dates: start: 20040428
  14. TRICOR [Concomitant]
     Indication: BLOOD TRIGLYCERIDES INCREASED
     Dosage: 145 MG TO 160 MG DAILY
     Dates: start: 20040527
  15. CRESTOR [Concomitant]
     Dates: start: 20040527
  16. KLONOPIN [Concomitant]
     Dates: start: 20040428
  17. GLYBURIDE [Concomitant]
     Dates: start: 20040428
  18. GLUCOPHAGE [Concomitant]
     Dosage: 500 MG TO 1000 MG
     Dates: start: 20010430

REACTIONS (7)
  - DIABETES MELLITUS [None]
  - DIABETES MELLITUS INADEQUATE CONTROL [None]
  - DIABETIC NEUROPATHY [None]
  - ERECTILE DYSFUNCTION [None]
  - GLUCOSE TOLERANCE IMPAIRED [None]
  - NEUROPATHY PERIPHERAL [None]
  - TYPE 2 DIABETES MELLITUS [None]
